FAERS Safety Report 11220775 (Version 1)
Quarter: 2015Q2

REPORT INFORMATION
  Report Type: Spontaneous
  Country: US (occurrence: US)
  Receive Date: 20150626
  Receipt Date: 20150626
  Transmission Date: 20150821
  Serious: No
  Sender: FDA-Public Use
  Company Number: US-HORIZON-PEN-0099-2015

PATIENT
  Age: 67 Year
  Sex: Male

DRUGS (6)
  1. CILOSTAZOL. [Concomitant]
     Active Substance: CILOSTAZOL
  2. VITAMINS [Concomitant]
     Active Substance: VITAMINS
  3. PENNSAID [Suspect]
     Active Substance: DICLOFENAC SODIUM
     Indication: ARTHRALGIA
     Dosage: 2 SQUIRTS
     Route: 061
     Dates: start: 20150620, end: 20150620
  4. BABY ASPIRIN [Concomitant]
     Active Substance: ASPIRIN
  5. VIAGRA [Concomitant]
     Active Substance: SILDENAFIL CITRATE
     Dates: start: 20150620
  6. NEXIUM [Concomitant]
     Active Substance: ESOMEPRAZOLE MAGNESIUM

REACTIONS (2)
  - Eye swelling [Not Recovered/Not Resolved]
  - Wrong patient received medication [Unknown]

NARRATIVE: CASE EVENT DATE: 20150620
